FAERS Safety Report 24830130 (Version 1)
Quarter: 2025Q1

REPORT INFORMATION
  Report Type: Spontaneous
  Country: CN (occurrence: CN)
  Receive Date: 20250110
  Receipt Date: 20250110
  Transmission Date: 20250409
  Serious: Yes (Other)
  Sender: BIOVITRUM
  Company Number: CN-BIOVITRUM-2025-CN-000193

PATIENT
  Age: 28 Year
  Sex: Male
  Weight: 33.4 kg

DRUGS (12)
  1. ANAKINRA [Suspect]
     Active Substance: ANAKINRA
     Indication: Cryopyrin associated periodic syndrome
  2. ANAKINRA [Suspect]
     Active Substance: ANAKINRA
  3. SIROLIMUS [Suspect]
     Active Substance: SIROLIMUS
     Indication: Product used for unknown indication
  4. PREDNISONE [Suspect]
     Active Substance: PREDNISONE
     Indication: Cryopyrin associated periodic syndrome
  5. PREDNISONE [Suspect]
     Active Substance: PREDNISONE
     Indication: Hormone therapy
  6. LEFLUNOMIDE [Suspect]
     Active Substance: LEFLUNOMIDE
     Indication: Cryopyrin associated periodic syndrome
  7. THALIDOMIDE [Suspect]
     Active Substance: THALIDOMIDE
     Indication: Cryopyrin associated periodic syndrome
  8. CEFOPERAZONE SODIUM\SULBACTAM SODIUM [Suspect]
     Active Substance: CEFOPERAZONE SODIUM\SULBACTAM SODIUM
     Indication: Infection prophylaxis
  9. TACROLIMUS [Suspect]
     Active Substance: TACROLIMUS
     Indication: Immunosuppressant drug therapy
  10. TACROLIMUS [Suspect]
     Active Substance: TACROLIMUS
  11. MYCOPHENOLATE SODIUM [Suspect]
     Active Substance: MYCOPHENOLATE SODIUM
     Indication: Immunosuppressant drug therapy
  12. METHYLPREDNISOLONE [Suspect]
     Active Substance: METHYLPREDNISOLONE
     Indication: Hormone therapy

REACTIONS (5)
  - Disease progression [Recovered/Resolved]
  - Azotaemia [Recovered/Resolved]
  - Rash [Recovered/Resolved]
  - Renal tubular injury [Recovered/Resolved]
  - Off label use [Unknown]

NARRATIVE: CASE EVENT DATE: 20200601
